FAERS Safety Report 17191235 (Version 1)
Quarter: 2019Q4

REPORT INFORMATION
  Report Type: Spontaneous
  Country: JP (occurrence: JP)
  Receive Date: 20191223
  Receipt Date: 20191223
  Transmission Date: 20200122
  Serious: Yes (Other)
  Sender: FDA-Public Use
  Company Number: NVSJ2019JP005791

PATIENT
  Age: 64 Year
  Sex: Male

DRUGS (1)
  1. PAZOPANIB [Suspect]
     Active Substance: PAZOPANIB
     Indication: METASTATIC RENAL CELL CARCINOMA
     Route: 048

REACTIONS (7)
  - Toxicity to various agents [Recovering/Resolving]
  - Disseminated intravascular coagulation [Recovering/Resolving]
  - Pyrexia [Recovering/Resolving]
  - Immune system disorder [Recovering/Resolving]
  - Hepatic function abnormal [Recovering/Resolving]
  - Platelet count decreased [Recovering/Resolving]
  - Tumour lysis syndrome [Recovering/Resolving]
